FAERS Safety Report 18751015 (Version 3)
Quarter: 2022Q2

REPORT INFORMATION
  Report Type: Spontaneous
  Country: JP (occurrence: JP)
  Receive Date: 20210118
  Receipt Date: 20220624
  Transmission Date: 20220721
  Serious: Yes (Life-Threatening, Hospitalization, Other)
  Sender: FDA-Public Use
  Company Number: JP-VIIV HEALTHCARE LIMITED-39202

PATIENT

DRUGS (7)
  1. ABACAVIR SULFATE\DOLUTEGRAVIR SODIUM\LAMIVUDINE [Suspect]
     Active Substance: ABACAVIR SULFATE\DOLUTEGRAVIR SODIUM\LAMIVUDINE
     Indication: HIV infection
     Dosage: 1 DF, QD
     Route: 048
  2. ABACAVIR SULFATE\DOLUTEGRAVIR SODIUM\LAMIVUDINE [Suspect]
     Active Substance: ABACAVIR SULFATE\DOLUTEGRAVIR SODIUM\LAMIVUDINE
     Dosage: 1 DF, QD
     Route: 048
     Dates: start: 202011
  3. ZOLPIDEM TARTRATE [Concomitant]
     Active Substance: ZOLPIDEM TARTRATE
     Dosage: 1 DF, QD
     Dates: start: 20201224
  4. FLORINEF ACETATE [Concomitant]
     Active Substance: FLUDROCORTISONE ACETATE
     Dosage: 0.5 DF, QD
     Dates: start: 20201217
  5. DROXIDOPA [Concomitant]
     Active Substance: DROXIDOPA
     Dosage: 3 DF, TID
     Dates: start: 202012
  6. QUETIAPINE FUMARATE [Concomitant]
     Active Substance: QUETIAPINE FUMARATE
     Dosage: 1 DF, QD
     Dates: start: 20201217
  7. MIDODRINE HYDROCHLORIDE [Concomitant]
     Active Substance: MIDODRINE HYDROCHLORIDE
     Dosage: 2 DF, BID
     Dates: start: 20201224

REACTIONS (12)
  - Cardiac arrest [Recovered/Resolved]
  - Pneumonia [Unknown]
  - Postresuscitation encephalopathy [Unknown]
  - Road traffic accident [Unknown]
  - Vomiting [Unknown]
  - Amnestic disorder [Unknown]
  - Mobility decreased [Unknown]
  - Fall [Unknown]
  - Orthostatic hypotension [Unknown]
  - Presyncope [Unknown]
  - Pyrexia [Not Recovered/Not Resolved]
  - Vocal cord paralysis [Unknown]

NARRATIVE: CASE EVENT DATE: 20210102
